FAERS Safety Report 17130443 (Version 1)
Quarter: 2019Q4

REPORT INFORMATION
  Report Type: Spontaneous
  Country: GB (occurrence: FR)
  Receive Date: 20191209
  Receipt Date: 20191209
  Transmission Date: 20200122
  Serious: Yes (Hospitalization)
  Sender: FDA-Public Use
  Company Number: FR-BAYER-2019-216272

PATIENT
  Age: 61 Year
  Sex: Female
  Weight: 58 kg

DRUGS (2)
  1. STIVARGA [Suspect]
     Active Substance: REGORAFENIB
     Indication: UTERINE LEIOMYOSARCOMA
     Dosage: 160 MG, QD
     Route: 048
     Dates: start: 20191022, end: 20191111
  2. BAVENCIO [Suspect]
     Active Substance: AVELUMAB
     Indication: UTERINE LEIOMYOSARCOMA
     Dosage: CONCENTRATE FOR SOLUTION FOR INFUSION
     Route: 041

REACTIONS (4)
  - Constipation [Not Recovered/Not Resolved]
  - Hyperhidrosis [Unknown]
  - Rash maculo-papular [Recovered/Resolved]
  - Pyrexia [Recovered/Resolved]

NARRATIVE: CASE EVENT DATE: 20191108
